FAERS Safety Report 5501469-1 (Version None)
Quarter: 2007Q4

REPORT INFORMATION
  Report Type: 
  Country: None (occurrence: None)
  Receive Date: 20071023
  Receipt Date: 20060929
  Transmission Date: 20080405
  Serious: Yes (Hospitalization, Other)
  Sender: FDA-Public Use
  Company Number: 30981

PATIENT
  Age: 64 Year
  Sex: Female

DRUGS (10)
  1. CYTARABINE [Suspect]
     Dosage: 1G/M2 INTRAVENOUSLY
     Route: 042
     Dates: start: 20060803, end: 20060807
  2. ALLOPURINOL [Concomitant]
  3. DYAZIDE [Concomitant]
  4. VALTREX [Concomitant]
  5. BACTRIM DS [Concomitant]
  6. OXALIPLATIN [Concomitant]
  7. FLUDARABINE PHOSPHATE [Concomitant]
  8. CYTARABINE [Concomitant]
  9. RITUXAN [Concomitant]
  10. POTASSIUM CHLORIDE [Concomitant]

REACTIONS (1)
  - FEBRILE NEUTROPENIA [None]
